FAERS Safety Report 25597275 (Version 4)
Quarter: 2025Q4

REPORT INFORMATION
  Report Type: Spontaneous
  Country: US (occurrence: US)
  Receive Date: 20250723
  Receipt Date: 20251112
  Transmission Date: 20260119
  Serious: Yes (Death, Hospitalization)
  Sender: VERTEX
  Company Number: US-VERTEX PHARMACEUTICALS-2025-011921

PATIENT
  Sex: Male

DRUGS (1)
  1. ALYFTREK [Suspect]
     Active Substance: DEUTIVACAFTOR\TEZACAFTOR\VANZACAFTOR
     Indication: Cystic fibrosis
     Dosage: 10MG VANZACAFTOR/50MG TEZACAFTOR/ 125MG DEUTIVACAFTOR
     Route: 048
     Dates: start: 20250415

REACTIONS (4)
  - Death [Fatal]
  - Rib fracture [Unknown]
  - Traumatic lung injury [Not Recovered/Not Resolved]
  - Accident [Unknown]

NARRATIVE: CASE EVENT DATE: 20250101
